FAERS Safety Report 9862127 (Version 3)
Quarter: 2014Q4

REPORT INFORMATION
  Report Type: Spontaneous
  Country: DK (occurrence: DK)
  Receive Date: 20140203
  Receipt Date: 20141008
  Transmission Date: 20150529
  Serious: Yes (Death, Hospitalization)
  Sender: FDA-Public Use
  Company Number: DK-SA-2014SA010870

PATIENT
  Age: 68 Year
  Sex: Male

DRUGS (12)
  1. ELIGARD [Concomitant]
     Active Substance: LEUPROLIDE ACETATE
  2. CENTYL MED KALIUMKLORID [Concomitant]
     Active Substance: BENDROFLUMETHIAZIDE\POTASSIUM CHLORIDE
  3. PARACETAMOL [Concomitant]
     Active Substance: ACETAMINOPHEN
  4. ATORVASTATIN [Concomitant]
     Active Substance: ATORVASTATIN
  5. FENTANYL. [Concomitant]
     Active Substance: FENTANYL
  6. JEVTANA [Suspect]
     Active Substance: CABAZITAXEL
     Indication: PROSTATE CANCER METASTATIC
     Dosage: REDUCED DOSE 80 %, IS TREATED WITH 5 CYCLES AT 80 %. THE FIFTH CYCLE IS GIVEN ON 05-MAR-2013
     Route: 065
     Dates: start: 20121204, end: 20130305
  7. CALCIUM PHOSPHATE/CALCIUM SODIUM LACTATE/ERGOCALCIFEROL [Concomitant]
  8. METOPROLOL TARTRATE. [Concomitant]
     Active Substance: METOPROLOL TARTRATE
  9. PANTOPRAZOLE [Concomitant]
     Active Substance: PANTOPRAZOLE SODIUM
  10. RIVOTRIL [Concomitant]
     Active Substance: CLONAZEPAM
  11. EMPERAL [Concomitant]
     Active Substance: METOCLOPRAMIDE HYDROCHLORIDE
  12. ACTIQ [Concomitant]
     Active Substance: FENTANYL CITRATE

REACTIONS (6)
  - Overdose [Fatal]
  - Pulmonary oedema [Unknown]
  - Drug administration error [Fatal]
  - Neutropenia [Fatal]
  - Pneumonia [Fatal]
  - Atrial fibrillation [Unknown]

NARRATIVE: CASE EVENT DATE: 201303
